FAERS Safety Report 20617770 (Version 1)
Quarter: 2022Q1

REPORT INFORMATION
  Report Type: Spontaneous
  Country: US (occurrence: US)
  Receive Date: 20220321
  Receipt Date: 20220321
  Transmission Date: 20220423
  Serious: Yes (Other)
  Sender: FDA-Public Use
  Company Number: US-HLS-202200262

PATIENT

DRUGS (1)
  1. CLOZAPINE [Suspect]
     Active Substance: CLOZAPINE
     Indication: Schizophrenia
     Route: 065

REACTIONS (9)
  - Delusion [Unknown]
  - Fear-related avoidance of activities [Unknown]
  - Memory impairment [Unknown]
  - Apathy [Unknown]
  - Schizophrenia [Unknown]
  - Speech disorder [Unknown]
  - Mental impairment [Unknown]
  - Asthenia [Unknown]
  - Hallucination, auditory [Unknown]
